FAERS Safety Report 12772176 (Version 1)
Quarter: 2016Q3

REPORT INFORMATION
  Report Type: Spontaneous
  Country: FI (occurrence: FI)
  Receive Date: 20160922
  Receipt Date: 20160922
  Transmission Date: 20161109
  Serious: Yes (Hospitalization)
  Sender: FDA-Public Use
  Company Number: FI-JNJFOC-20160922353

PATIENT
  Age: 58 Year
  Sex: Male

DRUGS (3)
  1. LOSARTAN. [Concomitant]
     Active Substance: LOSARTAN
     Indication: HYPERTENSION
     Route: 065
     Dates: start: 2012
  2. XARELTO [Suspect]
     Active Substance: RIVAROXABAN
     Indication: THROMBOSIS PROPHYLAXIS
     Route: 048
     Dates: start: 2013
  3. BISOPROLOL [Concomitant]
     Active Substance: BISOPROLOL
     Indication: ARRHYTHMIA PROPHYLAXIS
     Route: 048
     Dates: start: 2012

REACTIONS (3)
  - Biliary colic [Recovered/Resolved]
  - Cholelithiasis [Recovered/Resolved]
  - Cholecystectomy [Recovered/Resolved]

NARRATIVE: CASE EVENT DATE: 201608
